FAERS Safety Report 8522761-2 (Version None)
Quarter: 2012Q3

REPORT INFORMATION
  Report Type: 
  Country: None (occurrence: None)
  Receive Date: 20120719
  Receipt Date: 20120718
  Transmission Date: 20120928
  Serious: Yes (Hospitalization)
  Sender: FDA-Public Use
  Company Number: AU-B.I. PHARMACEUTICALS,INC./RIDGEFIELD-2012-AU-01274AU

PATIENT
  Age: 50 Year
  Sex: Female

DRUGS (1)
  1. MOBIC [Suspect]

REACTIONS (1)
  - CEREBRAL INFARCTION [None]
